FAERS Safety Report 24658871 (Version 1)
Quarter: 2024Q4

REPORT INFORMATION
  Report Type: Spontaneous
  Country: US (occurrence: None)
  Receive Date: 20241122
  Receipt Date: 20241122
  Transmission Date: 20250114
  Serious: Yes (Hospitalization)
  Sender: Public
  Company Number: None

PATIENT
  Sex: 0

DRUGS (1)
  1. CILTACABTAGENE AUTOLEUCEL [Suspect]
     Active Substance: CILTACABTAGENE AUTOLEUCEL

REACTIONS (6)
  - Immune effector cell-associated HLH-like syndrome [None]
  - Serum ferritin increased [None]
  - Cytokine release syndrome [None]
  - Unevaluable event [None]
  - Facial paralysis [None]
  - Bell^s palsy [None]

NARRATIVE: CASE EVENT DATE: 20240927
